FAERS Safety Report 24580813 (Version 1)
Quarter: 2024Q4

REPORT INFORMATION
  Report Type: Spontaneous
  Country: DE (occurrence: DE)
  Receive Date: 20241105
  Receipt Date: 20241105
  Transmission Date: 20250114
  Serious: Yes (Other)
  Sender: MYLAN
  Company Number: DE-BAYER-2024A142873

PATIENT
  Age: 38 Year
  Sex: Female

DRUGS (2)
  1. SORAFENIB [Suspect]
     Active Substance: SORAFENIB
     Indication: Acute myeloid leukaemia
     Dosage: 400 MILLIGRAM, BID (FILM-COATED TABLET, 800 MG, QD)
     Route: 065
  2. Lymphocytes nos [Concomitant]
     Dosage: UNK
     Route: 065

REACTIONS (4)
  - Cervical conisation [Unknown]
  - Pneumocystis jirovecii pneumonia [Unknown]
  - Haemorrhage [Unknown]
  - Off label use [Unknown]
